FAERS Safety Report 5212703-X (Version None)
Quarter: 2007Q1

REPORT INFORMATION
  Report Type: 
  Country: None (occurrence: None)
  Receive Date: 20061115
  Receipt Date: 20060710
  Transmission Date: 20070707
  Serious: Yes (Hospitalization)
  Sender: FDA-Public Use
  Company Number: 200613395BWH

PATIENT
  Age: 73 Year
  Sex: Male
  Weight: 98.4306 kg

DRUGS (9)
  1. NEXAVAR [Suspect]
     Indication: METASTATIC RENAL CELL CARCINOMA
     Dosage: SEE IMAGE
     Route: 048
     Dates: start: 20051219, end: 20060113
  2. NEXAVAR [Suspect]
     Indication: METASTATIC RENAL CELL CARCINOMA
     Dosage: SEE IMAGE
     Route: 048
     Dates: start: 20060119
  3. GLUCOPHAGE [Concomitant]
  4. VASOTEC [Concomitant]
  5. IMDUR [Concomitant]
  6. LASIX [Concomitant]
  7. ZOCOR [Concomitant]
  8. NEXIUM [Concomitant]
  9. COUMADIN [Concomitant]

REACTIONS (10)
  - ARTHRALGIA [None]
  - BLOOD PRESSURE INCREASED [None]
  - DEHYDRATION [None]
  - DIARRHOEA [None]
  - GAIT DISTURBANCE [None]
  - INFLUENZA [None]
  - NERVE COMPRESSION [None]
  - NEUROPATHY [None]
  - PAIN IN EXTREMITY [None]
  - PYREXIA [None]
